FAERS Safety Report 9237642 (Version 1)
Quarter: 2013Q2

REPORT INFORMATION
  Report Type: Spontaneous
  Country: US (occurrence: US)
  Receive Date: 20130418
  Receipt Date: 20130418
  Transmission Date: 20140414
  Serious: Yes (Hospitalization)
  Sender: FDA-Public Use
  Company Number: US-BIOGENIDEC-2013BI033558

PATIENT
  Age: 53 Year
  Sex: Female

DRUGS (14)
  1. AVONEX [Suspect]
     Indication: MULTIPLE SCLEROSIS
     Route: 030
     Dates: start: 2008, end: 2009
  2. AVONEX [Suspect]
     Indication: MULTIPLE SCLEROSIS
     Route: 030
     Dates: start: 201207, end: 201210
  3. BACLOFEN [Concomitant]
     Indication: MULTIPLE SCLEROSIS
  4. NAPROXEN [Concomitant]
     Indication: ARTHRITIS
  5. INSULIN (NOS) [Concomitant]
     Dates: start: 2012, end: 2012
  6. REGLAN [Concomitant]
     Dates: start: 2012, end: 2012
  7. ANTIBIOTICS (NOS) [Concomitant]
     Route: 042
     Dates: start: 2012, end: 2012
  8. FLAGYL [Concomitant]
     Dates: start: 2012, end: 2012
  9. VANCOMYCIN [Concomitant]
     Dates: start: 2012, end: 2012
  10. LASIX [Concomitant]
     Route: 042
     Dates: start: 2012, end: 2012
  11. LOMOTIL [Concomitant]
     Indication: DIARRHOEA
  12. METAMUCIL [Concomitant]
     Indication: DIARRHOEA
  13. PULMONARY TREATMENT [Concomitant]
     Indication: PNEUMOTHORAX
  14. POTASSIUM [Concomitant]
     Route: 042
     Dates: start: 2012, end: 2012

REACTIONS (2)
  - Ileostomy closure [Unknown]
  - Arthritis [Not Recovered/Not Resolved]
